FAERS Safety Report 9692103 (Version 3)
Quarter: 2014Q2

REPORT INFORMATION
  Report Type: Spontaneous
  Country: US (occurrence: US)
  Receive Date: 20131118
  Receipt Date: 20140619
  Transmission Date: 20141212
  Serious: Yes (Death)
  Sender: FDA-Public Use
  Company Number: US-BIOGENIDEC-2013BI108884

PATIENT
  Age: 73 Year
  Sex: Male

DRUGS (11)
  1. AVONEX [Suspect]
     Indication: MULTIPLE SCLEROSIS
     Route: 030
     Dates: start: 20110308
  2. ALLOPURINOL [Concomitant]
  3. ASPIRIN [Concomitant]
  4. CALCIUM 600 [Concomitant]
  5. FERROUS SULFATE CR [Concomitant]
  6. KEPPRA [Concomitant]
  7. NABUMETONE [Concomitant]
  8. PRILOSEC [Concomitant]
  9. THEOPHYLLINE CR [Concomitant]
  10. ZANTAC [Concomitant]
  11. ZONISAMIDE [Concomitant]

REACTIONS (1)
  - Death [Fatal]
